FAERS Safety Report 7496877-6 (Version None)
Quarter: 2011Q2

REPORT INFORMATION
  Report Type: 
  Country: None (occurrence: None)
  Receive Date: 20110523
  Receipt Date: 20110512
  Transmission Date: 20111010
  Serious: Yes (Hospitalization)
  Sender: FDA-Public Use
  Company Number: DE-ELI_LILLY_AND_COMPANY-DE201102005723

PATIENT
  Sex: Male
  Weight: 146 kg

DRUGS (6)
  1. RAMIPRIL [Concomitant]
  2. METFORMIN [Concomitant]
     Dosage: UNK
  3. BYETTA [Suspect]
     Indication: DIABETES MELLITUS
     Dosage: 10 UG, 2/D
     Route: 058
     Dates: start: 20110113, end: 20110315
  4. INSULIN [Concomitant]
  5. ASTHMA-SPRAY [Concomitant]
     Indication: ASTHMA
     Route: 055
  6. ANTIDEPRESSANTS [Concomitant]
     Indication: DEPRESSION

REACTIONS (7)
  - OBESITY [None]
  - DIARRHOEA [None]
  - THROMBOPHLEBITIS [None]
  - OFF LABEL USE [None]
  - BLOOD GLUCOSE INCREASED [None]
  - HELICOBACTER GASTRITIS [None]
  - ABDOMINAL PAIN UPPER [None]
